FAERS Safety Report 5904919-1 (Version None)
Quarter: 2008Q3

REPORT INFORMATION
  Report Type: 
  Country: None (occurrence: None)
  Receive Date: 20080909
  Receipt Date: 20080613
  Transmission Date: 20090109
  Serious: Yes (Hospitalization, Other)
  Sender: FDA-Public Use
  Company Number: 163-20785-08031685

PATIENT
  Age: 14 Year
  Sex: Female
  Weight: 57.5 kg

DRUGS (28)
  1. THALOMID [Suspect]
     Indication: NEURILEMMOMA MALIGNANT
     Dosage: 500 MG, QD, ORAL
     Route: 048
     Dates: start: 20071130, end: 20080301
  2. CELECOXIB [Suspect]
     Indication: NEURILEMMOMA MALIGNANT
     Dosage: 800 MG, BID
     Dates: start: 20071130, end: 20080301
  3. FENOFIBRATE [Suspect]
     Indication: NEURILEMMOMA MALIGNANT
     Dosage: 45 MG, DAILY
     Dates: start: 20071130, end: 20080301
  4. ETOPOSIDE [Suspect]
     Indication: NEURILEMMOMA MALIGNANT
     Dosage: 80 MG, QD ALTERNATES WITH CYCLOPHOSPHAMIDE Q21D,
     Dates: start: 20071130, end: 20080301
  5. CYCLOPHOSPHAMIDE [Concomitant]
     Indication: NEURILEMMOMA MALIGNANT
     Dosage: ALTERNATES WITH ETOPOSIDE Q21D
     Dates: start: 20071130, end: 20080301
  6. NEURONTIN [Concomitant]
  7. LYRICA [Concomitant]
  8. DEPO-PROVERA SUSPENSION/INJ [Concomitant]
  9. PENTAMIDINE (PENTAMIDINE) [Concomitant]
  10. TPN (TPN) [Concomitant]
  11. ALOXI [Concomitant]
  12. REGLAN [Concomitant]
  13. BENADRYL [Concomitant]
  14. SCOPOLAMINE [Concomitant]
  15. MARINOL [Concomitant]
  16. ATIVAN [Concomitant]
  17. MIRALAX [Concomitant]
  18. CEFEPIME [Concomitant]
  19. GENTAMICIN [Concomitant]
  20. VANCOMYCIN [Concomitant]
  21. FLUCONAZOLE [Concomitant]
  22. AZITHROMYCIN [Concomitant]
  23. CEFUROXIME [Concomitant]
  24. MEROPENEM (MEROPENEM) [Concomitant]
  25. METHADONE HCL [Concomitant]
  26. GEMCITABINE [Concomitant]
  27. DOCETAXEL [Concomitant]
  28. AUGMENTIN (CLAVULIN) (UNKNOWN) [Concomitant]

REACTIONS (10)
  - CELLULITIS [None]
  - CHEST PAIN [None]
  - DEHYDRATION [None]
  - HAEMOGLOBIN DECREASED [None]
  - NEOPLASM PROGRESSION [None]
  - NEURILEMMOMA MALIGNANT [None]
  - PAIN IN EXTREMITY [None]
  - PLATELET COUNT DECREASED [None]
  - PYREXIA [None]
  - VOMITING [None]
